FAERS Safety Report 16852112 (Version 9)
Quarter: 2020Q1

REPORT INFORMATION
  Report Type: Spontaneous
  Country: BE (occurrence: BE)
  Receive Date: 20190925
  Receipt Date: 20200227
  Transmission Date: 20200409
  Serious: Yes (Death, Hospitalization, Other)
  Sender: FDA-Public Use
  Company Number: PHHY2019BE221126

PATIENT
  Sex: Male
  Weight: 96.7 kg

DRUGS (5)
  1. DAFALGAN [Concomitant]
     Active Substance: ACETAMINOPHEN
     Indication: PYREXIA
     Dosage: UNK
     Route: 065
     Dates: start: 20190817, end: 20191103
  2. PANTOMED [Concomitant]
     Indication: PRODUCT USED FOR UNKNOWN INDICATION
     Dosage: 40 MG, QD
     Route: 065
     Dates: start: 20190822
  3. FLUDARABINE PHOSPHATE. [Suspect]
     Active Substance: FLUDARABINE PHOSPHATE
     Indication: BONE MARROW CONDITIONING REGIMEN
     Dosage: 60 MG, QD
     Route: 042
     Dates: start: 20190822, end: 20190824
  4. FOLAVIT [Concomitant]
     Active Substance: FOLIC ACID
     Indication: PROPHYLAXIS
     Dosage: UNK
     Route: 065
     Dates: start: 20190823, end: 20191109
  5. CYCLOPHOSPHAMIDE. [Suspect]
     Active Substance: CYCLOPHOSPHAMIDE
     Indication: BONE MARROW CONDITIONING REGIMEN
     Dosage: 1000 MG, QD
     Route: 042
     Dates: start: 20190822, end: 20190824

REACTIONS (28)
  - Haemophagocytic lymphohistiocytosis [Not Recovered/Not Resolved]
  - Lymphoma [Unknown]
  - Blood culture positive [Recovered/Resolved]
  - Febrile neutropenia [Unknown]
  - Febrile neutropenia [Recovered/Resolved]
  - Headache [Recovered/Resolved]
  - Septic shock [Recovered/Resolved]
  - Cytokine release syndrome [Recovered/Resolved]
  - Pneumococcal sepsis [Recovered/Resolved]
  - Death [Fatal]
  - Febrile neutropenia [Recovered/Resolved]
  - Thrombocytopenia [Not Recovered/Not Resolved]
  - Disease progression [Unknown]
  - Nasal obstruction [Recovered/Resolved]
  - Pyrexia [Recovered/Resolved]
  - Haemophagocytic lymphohistiocytosis [Not Recovered/Not Resolved]
  - Diffuse large B-cell lymphoma [Fatal]
  - Cytokine release syndrome [Recovering/Resolving]
  - Neurotoxicity [Recovered/Resolved]
  - Hyperglycaemia [Not Recovered/Not Resolved]
  - Retinal haemorrhage [Unknown]
  - Cytomegalovirus infection [Recovered/Resolved]
  - Neutropenia [Not Recovered/Not Resolved]
  - Cytopenia [Not Recovered/Not Resolved]
  - Tumour associated fever [Recovered/Resolved]
  - Pancytopenia [Not Recovered/Not Resolved]
  - Tongue ulceration [Unknown]
  - Oral herpes [Recovered/Resolved]

NARRATIVE: CASE EVENT DATE: 20190816
